FAERS Safety Report 9484886 (Version 1)
Quarter: 2013Q3

REPORT INFORMATION
  Report Type: Spontaneous
  Country: US (occurrence: US)
  Receive Date: 20130828
  Receipt Date: 20130828
  Transmission Date: 20140515
  Serious: No
  Sender: FDA-Public Use
  Company Number: US-ABBOTT-13P-163-1117973-00

PATIENT
  Age: 56 Year
  Sex: Male
  Weight: 90.8 kg

DRUGS (2)
  1. ANDROGEL 1.62% [Suspect]
     Indication: BLOOD TESTOSTERONE DECREASED
     Dosage: 4 PUMPS/DAY
     Dates: start: 20130704, end: 20130708
  2. ANDROGEL 1.62% [Suspect]
     Dosage: 2 PUMPS PER DAY
     Dates: start: 20130708

REACTIONS (5)
  - Abdominal pain upper [Not Recovered/Not Resolved]
  - Diarrhoea [Not Recovered/Not Resolved]
  - Mood swings [Not Recovered/Not Resolved]
  - Agitation [Recovering/Resolving]
  - Hot flush [Recovering/Resolving]
